FAERS Safety Report 19136596 (Version 1)
Quarter: 2021Q2

REPORT INFORMATION
  Report Type: Spontaneous
  Country: DE (occurrence: DE)
  Receive Date: 20210414
  Receipt Date: 20210414
  Transmission Date: 20210717
  Serious: Yes (Hospitalization)
  Sender: FDA-Public Use
  Company Number: DE-TEVA-2021-DE-1899387

PATIENT
  Age: 69 Year
  Sex: Female
  Weight: 65 kg

DRUGS (15)
  1. ASS 100 [Concomitant]
     Active Substance: ASPIRIN
     Dosage: 100 MILLIGRAM DAILY;  0?1?0?0,
  2. CANDESARTAN. [Concomitant]
     Active Substance: CANDESARTAN
     Dosage: 16 MILLIGRAM DAILY;  1?0?1?0,
  3. IBANDRONSAURE CHEMI 3MG INJEKTIONSLOSUNG [Concomitant]
     Dosage: 3 MG / EVERY 3 MONTHS, 1 X,
     Route: 042
  4. MTX [Suspect]
     Active Substance: METHOTREXATE SODIUM
     Dosage: 12.5 MG / WEEK, 1 X,
     Route: 058
  5. EZETIMIB [Concomitant]
     Active Substance: EZETIMIBE
     Dosage: 10 MILLIGRAM DAILY;  0?0?1?0,
  6. METAMIZOL [Concomitant]
     Active Substance: METAMIZOLE SODIUM
     Dosage: REQUIREMENT , DROPS
  7. AMLODIPIN [Concomitant]
     Active Substance: AMLODIPINE BESYLATE
     Dosage: 5 MILLIGRAM DAILY;  1?0?0?0,
  8. PANTOPRAZOL [Concomitant]
     Active Substance: PANTOPRAZOLE SODIUM
     Dosage: 40 MG / EVERY OTHER DAY, 1?0?0?0,
  9. PREDNISOLON [Suspect]
     Active Substance: PREDNISOLONE
     Dosage: 2 DOSAGE FORMS DAILY; 2 MG, 2?0?0?0,
     Route: 065
  10. METOPROLOL. [Concomitant]
     Active Substance: METOPROLOL
     Dosage: 190 MILLIGRAM DAILY; 1?0?1?0,
  11. COLECALCIFEROL (VITAMIN D) [Concomitant]
     Active Substance: CHOLECALCIFEROL
     Dosage: 20000 IU / WEEK, 1 X,
  12. TILIDINE/NALOXONE [Concomitant]
     Active Substance: NALOXONE HYDROCHLORIDE\TILIDINE HYDROCHLORIDE
     Dosage: 2 DOSAGE FORMS DAILY; 4|50 MG, 1?0?1?0,
  13. FOLSAURE [Concomitant]
     Active Substance: FOLIC ACID
     Dosage: 5 MG / WEEK, 1 X SUNDAY,
  14. ATORVASTATIN [Concomitant]
     Active Substance: ATORVASTATIN
     Dosage: 20 MILLIGRAM DAILY;  0?0?1?0,
  15. CLOPIDOGREL [Concomitant]
     Active Substance: CLOPIDOGREL BISULFATE
     Dosage: 75 MILLIGRAM DAILY; 1?0?0?0,

REACTIONS (4)
  - Nausea [Recovering/Resolving]
  - Urosepsis [Recovering/Resolving]
  - Diarrhoea [Recovering/Resolving]
  - General physical health deterioration [Recovering/Resolving]
